FAERS Safety Report 12711292 (Version 2)
Quarter: 2016Q4

REPORT INFORMATION
  Report Type: Spontaneous
  Country: FR (occurrence: FR)
  Receive Date: 20160902
  Receipt Date: 20161028
  Transmission Date: 20170207
  Serious: Yes (Hospitalization)
  Sender: FDA-Public Use
  Company Number: FR-PFIZER INC-2016405886

PATIENT
  Age: 69 Year
  Sex: Female

DRUGS (4)
  1. AFINITOR [Suspect]
     Active Substance: EVEROLIMUS
     Indication: BREAST CANCER METASTATIC
     Dosage: 1 DF (10 MG), 1X/DAY
     Route: 048
     Dates: start: 20151217, end: 20160706
  2. TARDYFERON [Concomitant]
     Active Substance: FERROUS SULFATE
     Dosage: 2 DF, 1X/DAY
     Route: 048
  3. AROMASINE [Suspect]
     Active Substance: EXEMESTANE
     Indication: BREAST CANCER METASTATIC
     Dosage: 1 DF (25 MG), 1X/DAY
     Route: 048
     Dates: start: 20151217
  4. IMOVANE [Concomitant]
     Active Substance: ZOPICLONE
     Dosage: 1 DF (7.5 MG), 1X/DAY
     Route: 048

REACTIONS (1)
  - Alveolitis allergic [Not Recovered/Not Resolved]

NARRATIVE: CASE EVENT DATE: 20160630
